FAERS Safety Report 9912444 (Version 2)
Quarter: 2014Q2

REPORT INFORMATION
  Report Type: Spontaneous
  Country: BR (occurrence: BR)
  Receive Date: 20140220
  Receipt Date: 20140410
  Transmission Date: 20141212
  Serious: Yes (Hospitalization, Other)
  Sender: FDA-Public Use
  Company Number: BR-BRISTOL-MYERS SQUIBB COMPANY-20174207

PATIENT
  Age: 63 Year
  Sex: Female
  Weight: 98 kg

DRUGS (14)
  1. BYETTA PEN DISPOSABLE [Suspect]
     Indication: DIABETES MELLITUS
     Dosage: 10MCG 2/D
     Route: 058
     Dates: start: 200909
  2. BYETTA PEN DISPOSABLE [Suspect]
     Indication: WEIGHT DECREASED
     Dosage: 10MCG 2/D
     Route: 058
     Dates: start: 200909
  3. SYNTHROID [Concomitant]
     Indication: HYPOTHYROIDISM
     Dosage: MORNING
     Route: 048
  4. LIPITOR [Concomitant]
     Indication: BLOOD CHOLESTEROL INCREASED
     Route: 048
  5. LIPITOR [Concomitant]
     Indication: BLOOD TRIGLYCERIDES INCREASED
     Route: 048
  6. CYMBALTA [Concomitant]
  7. LISDEXAMFETAMINE DIMESYLATE [Concomitant]
  8. LISDEXAMFETAMINE DIMESYLATE [Concomitant]
  9. LYRICA [Concomitant]
     Indication: DEPRESSION
     Dosage: ALL OF THE THREE
     Route: 048
  10. ATORVASTATIN [Concomitant]
  11. ORLISTAT [Concomitant]
  12. ARIMIDEX [Concomitant]
  13. OMEPRAZOLE [Concomitant]
  14. VICTOZA [Concomitant]

REACTIONS (5)
  - Cholelithiasis [Unknown]
  - Foot fracture [Not Recovered/Not Resolved]
  - Drug dose omission [Unknown]
  - Urinary tract infection [Unknown]
  - Weight decreased [Unknown]
